FAERS Safety Report 9538952 (Version 2)
Quarter: 2013Q4

REPORT INFORMATION
  Report Type: Report from Study
  Country: KR (occurrence: KR)
  Receive Date: 20130920
  Receipt Date: 20131002
  Transmission Date: 20140711
  Serious: Yes (Hospitalization)
  Sender: FDA-Public Use
  Company Number: KR-ASTELLAS-2013JP009653

PATIENT
  Age: 44 Year
  Sex: Female

DRUGS (10)
  1. MICAFUNGIN INJECTION [Suspect]
     Indication: ANTIFUNGAL PROPHYLAXIS
     Dosage: 100 MG, UNKNOWN/D
     Route: 042
     Dates: start: 20130315, end: 20130404
  2. TACROLIMUS [Concomitant]
     Dosage: 3 MG, UNKNOWN/D
     Route: 048
     Dates: start: 20130316
  3. BACTRIM [Concomitant]
     Dosage: 480 MG, UNKNOWN/D
     Route: 048
     Dates: start: 20130316
  4. GASTER                             /00706001/ [Concomitant]
     Dosage: 4 MG, UNKNOWN/D
     Route: 048
     Dates: start: 20130319
  5. LASIX                              /00032601/ [Concomitant]
     Dosage: 40 MG, UNKNOWN/D
     Route: 048
     Dates: start: 20130412
  6. ULCERLMIN [Concomitant]
     Dosage: 4 DF, UNKNOWN/D
     Route: 048
     Dates: start: 20130316
  7. NORZYME [Concomitant]
     Dosage: 3 DF, UNKNOWN/D
     Route: 048
     Dates: start: 20130319
  8. ASPIRIN PROTECT [Concomitant]
     Dosage: 100 MG, UNKNOWN/D
     Route: 048
     Dates: start: 20130322
  9. ROWACHOL                           /06253701/ [Concomitant]
     Dosage: 3 DF, UNKNOWN/D
     Route: 048
     Dates: start: 20130406
  10. SMECTA                             /00837601/ [Concomitant]
     Dosage: 30 ML, UNKNOWN/D
     Route: 048
     Dates: start: 20130412

REACTIONS (1)
  - Ascites [Recovered/Resolved]
